FAERS Safety Report 6837114-2 (Version None)
Quarter: 2010Q3

REPORT INFORMATION
  Report Type: 
  Country: None (occurrence: None)
  Receive Date: 20100713
  Receipt Date: 20070502
  Transmission Date: 20110219
  Serious: No
  Sender: FDA-Public Use
  Company Number: US-PFIZER INC-2007036885

PATIENT
  Sex: Female
  Weight: 90.909 kg

DRUGS (7)
  1. CHANTIX [Suspect]
     Indication: SMOKING CESSATION THERAPY
     Dates: start: 20070419
  2. COMBIVENT [Concomitant]
  3. PULMICORT [Concomitant]
  4. EFFEXOR [Concomitant]
  5. ESTRADIOL [Concomitant]
  6. PREVACID [Concomitant]
  7. MELOXICAM [Concomitant]

REACTIONS (2)
  - DRUG INEFFECTIVE [None]
  - NAUSEA [None]
